FAERS Safety Report 25287685 (Version 3)
Quarter: 2025Q2

REPORT INFORMATION
  Report Type: Spontaneous
  Country: CN (occurrence: CN)
  Receive Date: 20250509
  Receipt Date: 20250530
  Transmission Date: 20250716
  Serious: Yes (Hospitalization, Other)
  Sender: PFIZER
  Company Number: CN-PFIZER INC-PV202500054302

PATIENT
  Age: 54 Year
  Sex: Male

DRUGS (2)
  1. XYNTHA [Suspect]
     Active Substance: MOROCTOCOG ALFA
     Indication: Factor VIII deficiency
     Dosage: 1500 IU, ALTERNATE DAY
     Route: 042
     Dates: start: 20250107
  2. XYNTHA [Suspect]
     Active Substance: MOROCTOCOG ALFA
     Dosage: 1000 IU, ALTERNATE DAY
     Route: 042
     Dates: start: 20250407

REACTIONS (2)
  - Synovial disorder [Recovering/Resolving]
  - Chondropathy [Recovering/Resolving]

NARRATIVE: CASE EVENT DATE: 20250301
